FAERS Safety Report 19259758 (Version 5)
Quarter: 2022Q4

REPORT INFORMATION
  Report Type: Spontaneous
  Country: GB (occurrence: GB)
  Receive Date: 20210514
  Receipt Date: 20221205
  Transmission Date: 20230113
  Serious: Yes (Other)
  Sender: FDA-Public Use
  Company Number: GB-VERTEX PHARMACEUTICALS-2021-000310

PATIENT
  Sex: Female
  Weight: 66 kg

DRUGS (9)
  1. ELEXACAFTOR\IVACAFTOR\TEZACAFTOR [Suspect]
     Active Substance: ELEXACAFTOR\IVACAFTOR\TEZACAFTOR
     Indication: Cystic fibrosis
     Dosage: 2 TABS (75 MG IVACAFTOR/50 MG TEZACAFTOR/100 MG ELEXACAFTOR) AM
     Route: 048
     Dates: start: 20201111, end: 20210106
  2. ELEXACAFTOR\IVACAFTOR\TEZACAFTOR [Suspect]
     Active Substance: ELEXACAFTOR\IVACAFTOR\TEZACAFTOR
     Dosage: UNKNOWN DOSAGE REGIMEN
     Route: 048
     Dates: start: 20221016
  3. KALYDECO [Suspect]
     Active Substance: IVACAFTOR
     Indication: Cystic fibrosis
     Dosage: 1 TAB PM
     Route: 048
     Dates: start: 20201111, end: 20210106
  4. KALYDECO [Suspect]
     Active Substance: IVACAFTOR
     Dosage: UNKNOWN DOSAGE REGIMEN
     Route: 048
     Dates: start: 20221016
  5. FLUTICASONE FUROATE [Concomitant]
     Active Substance: FLUTICASONE FUROATE
  6. CREON [Concomitant]
     Active Substance: PANCRELIPASE AMYLASE\PANCRELIPASE LIPASE\PANCRELIPASE PROTEASE
  7. DORNASE ALFA [Concomitant]
     Active Substance: DORNASE ALFA
  8. FLUCLOXACILLIN [Concomitant]
     Active Substance: FLUCLOXACILLIN
  9. LORATADINE [Concomitant]
     Active Substance: LORATADINE

REACTIONS (1)
  - Cataract subcapsular [Unknown]

NARRATIVE: CASE EVENT DATE: 20200101
